FAERS Safety Report 9958363 (Version 3)
Quarter: 2014Q1

REPORT INFORMATION
  Report Type: Spontaneous
  Country: US (occurrence: US)
  Receive Date: 20140305
  Receipt Date: 20140325
  Transmission Date: 20141002
  Serious: No
  Sender: FDA-Public Use
  Company Number: US-009507513-1403USA000244

PATIENT
  Sex: Female
  Weight: 95.24 kg

DRUGS (1)
  1. IMPLANON [Suspect]
     Dosage: AS DIRECTED
     Route: 059
     Dates: start: 20120814, end: 20140314

REACTIONS (6)
  - Haemorrhage [Unknown]
  - Non-consummation [Unknown]
  - Device difficult to use [Recovered/Resolved]
  - Medical device complication [Not Recovered/Not Resolved]
  - Weight increased [Not Recovered/Not Resolved]
  - Medical device complication [Unknown]
